FAERS Safety Report 7059723-0 (Version None)
Quarter: 2010Q4

REPORT INFORMATION
  Report Type: 
  Country: None (occurrence: None)
  Receive Date: 20101025
  Receipt Date: 20101014
  Transmission Date: 20110411
  Serious: Yes (Hospitalization)
  Sender: FDA-Public Use
  Company Number: BR-ASTRAZENECA-2010SE48966

PATIENT
  Age: 52 Year
  Sex: Male
  Weight: 71 kg

DRUGS (7)
  1. METOPROLOL SUCCINATE [Suspect]
     Route: 048
     Dates: start: 20100401, end: 20101001
  2. METOPROLOL SUCCINATE [Suspect]
     Route: 048
     Dates: start: 20101001
  3. BENICAR HCT [Concomitant]
     Dosage: 40/12.5 MG
     Route: 048
     Dates: start: 20070101
  4. ZANIDIP [Concomitant]
     Route: 048
  5. LOPIGREL [Concomitant]
     Route: 048
  6. LIPITOR [Concomitant]
     Route: 048
     Dates: start: 20070101
  7. PANTOPRAZOLE [Concomitant]
     Route: 048
     Dates: start: 20091001

REACTIONS (4)
  - BLOOD PRESSURE INADEQUATELY CONTROLLED [None]
  - MYOCARDIAL INFARCTION [None]
  - NAUSEA [None]
  - PROTHROMBIN LEVEL INCREASED [None]
